FAERS Safety Report 5098293-3 (Version None)
Quarter: 2006Q3

REPORT INFORMATION
  Report Type: 
  Country: None (occurrence: None)
  Receive Date: 20060906
  Receipt Date: 20060904
  Transmission Date: 20061208
  Serious: Yes (Other)
  Sender: FDA-Public Use
  Company Number: FR-BOEHRINGER INGELHEIM PHARMACEUTICALS, INC.-2006-DE-04666GD

PATIENT

DRUGS (3)
  1. NEVIRAPINE [Suspect]
     Indication: HIV INFECTION
  2. STAVUDINE [Suspect]
     Indication: HIV INFECTION
     Dosage: 80 MG OR 60 MG (IF BODY WEIGHT {60 KG)
  3. DIDANOSINE [Suspect]
     Indication: HIV INFECTION
     Dosage: 400 MG OR 250 MG (IF BODY WEIGHT{60KG)

REACTIONS (1)
  - DRUG RESISTANCE [None]
